FAERS Safety Report 23693729 (Version 1)
Quarter: 2024Q2

REPORT INFORMATION
  Report Type: Spontaneous
  Country: US (occurrence: US)
  Receive Date: 20240401
  Receipt Date: 20240401
  Transmission Date: 20240716
  Serious: Yes (Other)
  Sender: FDA-Public Use
  Company Number: US-BAYER-2024A047333

PATIENT
  Age: 31 Year
  Sex: Male

DRUGS (1)
  1. KOVALTRY [Suspect]
     Active Substance: ANTIHEMOPHILIC FACTOR, HUMAN RECOMBINANT
     Indication: Factor VIII deficiency
     Dosage: 3000 IU, BIW
     Route: 042
     Dates: start: 201404

REACTIONS (2)
  - Haemorrhage [None]
  - Contusion [None]

NARRATIVE: CASE EVENT DATE: 20240321
